FAERS Safety Report 9659720 (Version 3)
Quarter: 2013Q4

REPORT INFORMATION
  Report Type: Spontaneous
  Country: US (occurrence: US)
  Receive Date: 20131031
  Receipt Date: 20131114
  Transmission Date: 20140711
  Serious: Yes (Other)
  Sender: FDA-Public Use
  Company Number: US-PFIZER INC-2013307450

PATIENT
  Age: 75 Year
  Sex: Male
  Weight: 100 kg

DRUGS (1)
  1. TOVIAZ [Suspect]
     Indication: HYPERTONIC BLADDER
     Dosage: 8 MG, 1X/DAY
     Dates: end: 20131022

REACTIONS (9)
  - Chondropathy [Unknown]
  - Arthralgia [Unknown]
  - Vision blurred [Unknown]
  - Memory impairment [Unknown]
  - Abdominal distension [Unknown]
  - Insomnia [Unknown]
  - Pain in extremity [Unknown]
  - Drug ineffective [Unknown]
  - Abdominal pain upper [Unknown]
